FAERS Safety Report 19944311 (Version 1)
Quarter: 2021Q4

REPORT INFORMATION
  Report Type: Spontaneous
  Country: US (occurrence: US)
  Receive Date: 20211008
  Receipt Date: 20211008
  Transmission Date: 20220303
  Serious: No
  Sender: FDA-Public Use
  Company Number: None

PATIENT
  Age: 69 Year
  Sex: Female
  Weight: 47.63 kg

DRUGS (1)
  1. COSENTYX [Suspect]
     Active Substance: SECUKINUMAB
     Indication: Psoriasis
     Dosage: INJECT 300MG (2 PENS) SUBCUTANEOUSLY ONCE A WEEK FOR 5  WEEKS AS DIRECTED???OTHER FREQUENCY : UD
     Route: 058
     Dates: start: 202105

REACTIONS (1)
  - Upper respiratory tract infection [None]
